FAERS Safety Report 5192087-6 (Version None)
Quarter: 2006Q4

REPORT INFORMATION
  Report Type: 
  Country: None (occurrence: None)
  Receive Date: 20061220
  Receipt Date: 20061208
  Transmission Date: 20070319
  Serious: Yes (Other)
  Sender: FDA-Public Use
  Company Number: 2006152448

PATIENT

DRUGS (1)
  1. EXUBERA [Suspect]

REACTIONS (1)
  - LUNG NEOPLASM MALIGNANT [None]
